FAERS Safety Report 14742091 (Version 1)
Quarter: 2018Q2

REPORT INFORMATION
  Report Type: Spontaneous
  Country: AU (occurrence: AU)
  Receive Date: 20180410
  Receipt Date: 20180410
  Transmission Date: 20180711
  Serious: Yes (Other)
  Sender: FDA-Public Use
  Company Number: AU-MYLANLABS-2018M1022478

PATIENT
  Age: 27 Year
  Sex: Female

DRUGS (4)
  1. DESMOPRESSIN [Suspect]
     Active Substance: DESMOPRESSIN
     Route: 048
  2. PERINDOPRIL [Concomitant]
     Active Substance: PERINDOPRIL
     Indication: PERIPARTUM CARDIOMYOPATHY
     Route: 065
  3. DESMOPRESSIN [Suspect]
     Active Substance: DESMOPRESSIN
     Indication: NEPHROGENIC DIABETES INSIPIDUS
     Route: 058
  4. CARVEDILOL. [Concomitant]
     Active Substance: CARVEDILOL
     Indication: PERIPARTUM CARDIOMYOPATHY
     Route: 065

REACTIONS (7)
  - Ejection fraction decreased [Recovering/Resolving]
  - Cardiac ventricular thrombosis [Recovered/Resolved]
  - Condition aggravated [Recovered/Resolved]
  - Cerebral thrombosis [Recovered/Resolved]
  - Pulmonary oedema [Unknown]
  - Embolism arterial [Recovered/Resolved]
  - Maternal exposure during pregnancy [Recovered/Resolved]
